FAERS Safety Report 10197625 (Version 1)
Quarter: 2014Q2

REPORT INFORMATION
  Report Type: Spontaneous
  Country: US (occurrence: US)
  Receive Date: 20140527
  Receipt Date: 20140527
  Transmission Date: 20141212
  Serious: No
  Sender: FDA-Public Use
  Company Number: US-NOVEN-14US009301

PATIENT
  Sex: Female

DRUGS (2)
  1. MINIVELLE [Suspect]
     Indication: HOT FLUSH
     Dosage: 0.1 MG, 2/WK
     Route: 062
     Dates: start: 2013
  2. MINIVELLE [Suspect]
     Indication: NIGHT SWEATS
     Dosage: 0.1 MG, 2/WK
     Route: 062

REACTIONS (3)
  - Incorrect dose administered [Not Recovered/Not Resolved]
  - Product quality issue [Not Recovered/Not Resolved]
  - No adverse event [None]
